FAERS Safety Report 7279591-1 (Version None)
Quarter: 2011Q1

REPORT INFORMATION
  Report Type: 
  Country: None (occurrence: None)
  Receive Date: 20110203
  Receipt Date: 20110203
  Transmission Date: 20110831
  Serious: Yes (Other)
  Sender: FDA-Public Use
  Company Number: None

PATIENT
  Sex: Female

DRUGS (1)
  1. DEXAMETHASONE SODIUM PHOSPHATE [Suspect]
     Indication: BURSITIS
     Dosage: 4 MG/ML ONCE INJECTION
     Dates: start: 20040329

REACTIONS (2)
  - PAIN [None]
  - SECRETION DISCHARGE [None]
